FAERS Safety Report 24774721 (Version 5)
Quarter: 2025Q3

REPORT INFORMATION
  Report Type: Report from Study
  Country: CA (occurrence: CA)
  Receive Date: 20241226
  Receipt Date: 20250806
  Transmission Date: 20251020
  Serious: Yes (Other)
  Sender: TAKEDA
  Company Number: CA-TAKEDA-2024TUS126448

PATIENT
  Sex: Female

DRUGS (20)
  1. VEDOLIZUMAB [Suspect]
     Active Substance: VEDOLIZUMAB
     Indication: Colitis microscopic
  2. VEDOLIZUMAB [Suspect]
     Active Substance: VEDOLIZUMAB
     Dosage: 300 MILLIGRAM, Q4WEEKS
     Dates: start: 20240927
  3. VEDOLIZUMAB [Suspect]
     Active Substance: VEDOLIZUMAB
     Dosage: 300 MILLIGRAM, Q4WEEKS
  4. VEDOLIZUMAB [Suspect]
     Active Substance: VEDOLIZUMAB
     Dosage: 300 MILLIGRAM, Q4WEEKS
  5. VEDOLIZUMAB [Suspect]
     Active Substance: VEDOLIZUMAB
     Dosage: 300 MILLIGRAM, Q4WEEKS
  6. VEDOLIZUMAB [Suspect]
     Active Substance: VEDOLIZUMAB
     Dosage: 300 MILLIGRAM, Q4WEEKS
  7. VEDOLIZUMAB [Suspect]
     Active Substance: VEDOLIZUMAB
     Dosage: 300 MILLIGRAM, Q4WEEKS
     Dates: start: 20240927
  8. VEDOLIZUMAB [Suspect]
     Active Substance: VEDOLIZUMAB
     Indication: Colitis microscopic
     Dosage: 108 MILLIGRAM, Q2WEEKS
     Dates: start: 20240618
  9. BISOPROLOL [Concomitant]
     Active Substance: BISOPROLOL
  10. JANUVIA [Concomitant]
     Active Substance: SITAGLIPTIN PHOSPHATE
  11. VITAMIN B12 [Concomitant]
     Active Substance: CYANOCOBALAMIN
  12. PANTOPRAZOLE [Concomitant]
     Active Substance: PANTOPRAZOLE
  13. NABILONE [Concomitant]
     Active Substance: NABILONE
  14. LIPITOR [Concomitant]
     Active Substance: ATORVASTATIN CALCIUM
  15. CYMBALTA [Concomitant]
     Active Substance: DULOXETINE HYDROCHLORIDE
  16. CELECOXIB [Concomitant]
     Active Substance: CELECOXIB
  17. CORTISONE [Concomitant]
     Active Substance: CORTISONE
  18. VENTOLIN [Concomitant]
     Active Substance: ALBUTEROL SULFATE
  19. ENTOCORT [Concomitant]
     Active Substance: BUDESONIDE
  20. FOSFOMYCIN [Concomitant]
     Active Substance: FOSFOMYCIN

REACTIONS (9)
  - Dupuytren^s contracture [Unknown]
  - Colitis microscopic [Unknown]
  - Vulvovaginal dryness [Unknown]
  - Incontinence [Unknown]
  - Dysuria [Not Recovered/Not Resolved]
  - Urinary tract infection bacterial [Recovering/Resolving]
  - Swelling of eyelid [Not Recovered/Not Resolved]
  - Erythema of eyelid [Not Recovered/Not Resolved]
  - Cystitis [Not Recovered/Not Resolved]
